FAERS Safety Report 4762049-9 (Version None)
Quarter: 2005Q3

REPORT INFORMATION
  Report Type: 
  Country: None (occurrence: None)
  Receive Date: 20050831
  Receipt Date: 20050720
  Transmission Date: 20060218
  Serious: No
  Sender: FDA-Public Use
  Company Number: PHEH2005US07972

PATIENT
  Age: 74 Year
  Sex: Female
  Weight: 78.9 kg

DRUGS (1)
  1. ENABLEX [Suspect]
     Indication: MICTURITION URGENCY
     Dosage: 7.5 MG, QD, ORAL
     Route: 048
     Dates: start: 20050606, end: 20050627

REACTIONS (1)
  - URINARY RETENTION [None]
